FAERS Safety Report 9940595 (Version 1)
Quarter: 2014Q1

REPORT INFORMATION
  Report Type: Spontaneous
  Country: US (occurrence: US)
  Receive Date: 20140303
  Receipt Date: 20140303
  Transmission Date: 20141002
  Serious: No
  Sender: FDA-Public Use
  Company Number: US-PFIZER INC-2014060231

PATIENT
  Age: 52 Year
  Sex: Female
  Weight: 80.73 kg

DRUGS (7)
  1. NEURONTIN [Suspect]
     Indication: BACK PAIN
     Dosage: UNK
     Dates: end: 20140228
  2. GABAPENTIN [Suspect]
     Dosage: 300 MG, 3X/DAY
     Dates: start: 20140228
  3. AMITRIPTYLINE [Concomitant]
     Indication: SLEEP DISORDER
     Dosage: 50 MG, 1X/DAY
  4. PROMETHAZINE [Concomitant]
     Dosage: 25 MG, 1X/DAY
  5. BACLOFEN [Concomitant]
     Dosage: UNK
  6. MELOXICAM [Concomitant]
     Indication: ARTHRALGIA
     Dosage: 7.5 MG, 1X/DAY
  7. HOMATROPINE/HYDROCODONE [Concomitant]
     Indication: BACK PAIN
     Dosage: HYDROCODONE(7.5/)MG/ HOMATROPINE(325  MG), 2X/DAY

REACTIONS (4)
  - Drug intolerance [Unknown]
  - Nausea [Unknown]
  - Dizziness [Unknown]
  - Disorientation [Unknown]
